FAERS Safety Report 4937713-9 (Version None)
Quarter: 2006Q1

REPORT INFORMATION
  Report Type: 
  Country: None (occurrence: None)
  Receive Date: 20060309
  Receipt Date: 20050315
  Transmission Date: 20060701
  Serious: Yes (Other)
  Sender: FDA-Public Use
  Company Number: US-MERCK-0503USA03179

PATIENT
  Age: 54 Year
  Sex: Female
  Weight: 70 kg

DRUGS (6)
  1. VIOXX [Suspect]
     Indication: ARTHRITIS
     Route: 048
     Dates: start: 19990701, end: 20040901
  2. VIOXX [Suspect]
     Indication: FRACTURE
     Route: 048
     Dates: start: 19990701, end: 20040901
  3. ACTOS [Concomitant]
     Route: 065
  4. ACCUPRIL [Concomitant]
     Route: 065
  5. LIPITOR [Concomitant]
     Route: 065
  6. GLIPIZIDE [Concomitant]
     Route: 065

REACTIONS (8)
  - CARDIAC FAILURE [None]
  - CEREBROVASCULAR ACCIDENT [None]
  - HEPATOCELLULAR DAMAGE [None]
  - MYOCARDIAL INFARCTION [None]
  - RENAL DISORDER [None]
  - THROMBOSIS [None]
  - ULCER [None]
  - VISUAL ACUITY REDUCED [None]
